FAERS Safety Report 15629575 (Version 1)
Quarter: 2018Q4

REPORT INFORMATION
  Report Type: Spontaneous
  Country: GB (occurrence: GB)
  Receive Date: 20181117
  Receipt Date: 20181117
  Transmission Date: 20190205
  Serious: Yes (Hospitalization, Disabling)
  Sender: FDA-Public Use
  Company Number: GB-TEVA-2018-GB-975957

PATIENT
  Age: 74 Year
  Sex: Male
  Weight: 60 kg

DRUGS (2)
  1. AMOXICILLIN. [Concomitant]
     Active Substance: AMOXICILLIN
     Dosage: 3 DOSAGE FORMS DAILY;
     Route: 065
     Dates: start: 20171102
  2. CETIRIZINE [Suspect]
     Active Substance: CETIRIZINE HYDROCHLORIDE
     Dosage: 1MG/ML
     Route: 048
     Dates: start: 20181002

REACTIONS (3)
  - Gastroenteritis viral [Not Recovered/Not Resolved]
  - Nausea [Recovered/Resolved with Sequelae]
  - Hypersensitivity [Unknown]

NARRATIVE: CASE EVENT DATE: 20181002
